FAERS Safety Report 15949250 (Version 1)
Quarter: 2019Q1

REPORT INFORMATION
  Report Type: Spontaneous
  Country: US (occurrence: US)
  Receive Date: 20190212
  Receipt Date: 20190212
  Transmission Date: 20190417
  Serious: Yes (Other)
  Sender: FDA-Public Use
  Company Number: None

PATIENT
  Age: 44 Year
  Sex: Male

DRUGS (1)
  1. VIVITROL [Suspect]
     Active Substance: NALTREXONE
     Indication: ALCOHOLISM
     Dosage: ?          OTHER FREQUENCY:ONCE A MONTH;?
     Route: 030
     Dates: start: 20190131

REACTIONS (7)
  - Injection site mass [None]
  - Injection site pain [None]
  - Product administered at inappropriate site [None]
  - Wrong technique in product usage process [None]
  - Injection site extravasation [None]
  - Rash [None]
  - Injection site swelling [None]

NARRATIVE: CASE EVENT DATE: 20190131
